FAERS Safety Report 16742067 (Version 3)
Quarter: 2020Q1

REPORT INFORMATION
  Report Type: Spontaneous
  Country: US (occurrence: US)
  Receive Date: 20190826
  Receipt Date: 20200131
  Transmission Date: 20200409
  Serious: Yes (Other)
  Sender: FDA-Public Use
  Company Number: US-ASTRAZENECA-2018SF65708

PATIENT
  Age: 13277 Day
  Sex: Female
  Weight: 99.8 kg

DRUGS (73)
  1. NEXIUM [Suspect]
     Active Substance: ESOMEPRAZOLE MAGNESIUM
     Indication: GASTROOESOPHAGEAL REFLUX DISEASE
     Dosage: 40.0MG UNKNOWN
     Route: 048
     Dates: start: 20010105, end: 2016
  2. NEXIUM [Suspect]
     Active Substance: ESOMEPRAZOLE MAGNESIUM
     Indication: GASTROOESOPHAGEAL REFLUX DISEASE
     Dosage: GENERIC ESOMEPRAZOLE40.0MG UNKNOWN
     Route: 065
     Dates: start: 201606, end: 201608
  3. DEXILANT [Suspect]
     Active Substance: DEXLANSOPRAZOLE
     Indication: GASTROOESOPHAGEAL REFLUX DISEASE
     Dosage: DELAYED RELEASE 60 MG CAPSULE
     Route: 065
     Dates: start: 20110627
  4. DEXILANT [Suspect]
     Active Substance: DEXLANSOPRAZOLE
     Indication: GASTROOESOPHAGEAL REFLUX DISEASE
     Dosage: DELAYED RELEASE 60 MG CAPSULE
     Route: 065
     Dates: start: 20170717
  5. ROSUVASTATIN. [Concomitant]
     Active Substance: ROSUVASTATIN
     Indication: BLOOD CHOLESTEROL INCREASED
     Dates: start: 2017
  6. NUCYNTA [Concomitant]
     Active Substance: TAPENTADOL HYDROCHLORIDE
  7. CELEBREX [Concomitant]
     Active Substance: CELECOXIB
  8. FROVA [Concomitant]
     Active Substance: FROVATRIPTAN SUCCINATE
  9. SPIRIVA [Concomitant]
     Active Substance: TIOTROPIUM BROMIDE MONOHYDRATE
  10. VISTARIL [Concomitant]
     Active Substance: HYDROXYZINE PAMOATE
  11. ERGOCALCIFEROL. [Concomitant]
     Active Substance: ERGOCALCIFEROL
  12. ZEGERID [Suspect]
     Active Substance: OMEPRAZOLE\SODIUM BICARBONATE
     Indication: GASTROOESOPHAGEAL REFLUX DISEASE
     Dosage: 40.0MG UNKNOWN
     Route: 065
     Dates: start: 20090611
  13. MEDROXYPROGESTERONE [Concomitant]
     Active Substance: MEDROXYPROGESTERONE
  14. CEFUROXIME. [Concomitant]
     Active Substance: CEFUROXIME
  15. NEXIUM [Suspect]
     Active Substance: ESOMEPRAZOLE MAGNESIUM
     Indication: GASTROOESOPHAGEAL REFLUX DISEASE
     Dosage: GENERIC ESOMEPRAZOLE MAGNESIUM40.0MG UNKNOWN
     Route: 065
     Dates: start: 20160614
  16. PRILOSEC [Suspect]
     Active Substance: OMEPRAZOLE MAGNESIUM
     Indication: GASTROOESOPHAGEAL REFLUX DISEASE
     Dosage: GENERIC OMEPRAZOLE40.0MG UNKNOWN
     Route: 065
     Dates: start: 20170419
  17. PREVACID [Suspect]
     Active Substance: LANSOPRAZOLE
     Indication: GASTROOESOPHAGEAL REFLUX DISEASE
     Dosage: GENERIC LANSOPRAZOLE
     Route: 065
  18. LEVOTHYROXINE. [Concomitant]
     Active Substance: LEVOTHYROXINE
  19. BENADRYL [Concomitant]
     Active Substance: DIPHENHYDRAMINE HYDROCHLORIDE
     Indication: MULTIPLE ALLERGIES
     Dates: start: 2014
  20. HYDROCODONE-APAP [Concomitant]
     Active Substance: ACETAMINOPHEN\HYDROCODONE
  21. VITAMIN D [Concomitant]
     Active Substance: VITAMIN D NOS
  22. LOPERAMIDE [Concomitant]
     Active Substance: LOPERAMIDE
  23. LOSARTAN. [Concomitant]
     Active Substance: LOSARTAN
  24. PROBIOTIC [Concomitant]
     Active Substance: PROBIOTICS NOS
  25. DULOXETINE. [Concomitant]
     Active Substance: DULOXETINE
  26. DEXILANT [Suspect]
     Active Substance: DEXLANSOPRAZOLE
     Indication: GASTROOESOPHAGEAL REFLUX DISEASE
     Route: 065
     Dates: start: 2009, end: 2017
  27. ZEGERID [Suspect]
     Active Substance: OMEPRAZOLE\SODIUM BICARBONATE
     Indication: GASTROOESOPHAGEAL REFLUX DISEASE
     Dosage: GENERIC OMEPRAZOLE BICARBONATE40.0MG UNKNOWN
     Route: 065
     Dates: start: 20100904
  28. DOXYCYCLINE. [Concomitant]
     Active Substance: DOXYCYCLINE
     Indication: ANTIBIOTIC THERAPY
     Route: 065
     Dates: start: 2012, end: 2015
  29. PEPCID [Concomitant]
     Active Substance: FAMOTIDINE
     Dosage: PEPCID AC (OTC)
     Dates: start: 2017
  30. LYRICA [Concomitant]
     Active Substance: PREGABALIN
  31. SEROQUEL [Concomitant]
     Active Substance: QUETIAPINE FUMARATE
  32. PROAIR HFA [Concomitant]
     Active Substance: ALBUTEROL SULFATE
  33. PROCTOFOAM [Concomitant]
     Active Substance: PRAMOXINE HYDROCHLORIDE
  34. PRILOSEC [Suspect]
     Active Substance: OMEPRAZOLE MAGNESIUM
     Indication: GASTROOESOPHAGEAL REFLUX DISEASE
     Route: 048
     Dates: start: 2016
  35. PRILOSEC [Suspect]
     Active Substance: OMEPRAZOLE MAGNESIUM
     Indication: GASTROOESOPHAGEAL REFLUX DISEASE
     Dosage: GENERIC OMEPRAZOLE, DELAYED RELEASE20.0MG UNKNOWN
     Route: 065
     Dates: start: 20170307
  36. DEXILANT [Suspect]
     Active Substance: DEXLANSOPRAZOLE
     Indication: GASTROOESOPHAGEAL REFLUX DISEASE
     Dosage: GENERIC DEXLANSOPRAZOLE
     Route: 065
     Dates: start: 2016, end: 2017
  37. TRAZODONE [Concomitant]
     Active Substance: TRAZODONE HYDROCHLORIDE
  38. FUROSEMIDE. [Concomitant]
     Active Substance: FUROSEMIDE
     Indication: FLUID RETENTION
     Dates: start: 2009, end: 2010
  39. PEPCID [Concomitant]
     Active Substance: FAMOTIDINE
     Dosage: PEPCID (PRESCRIPTION)
     Dates: start: 2017
  40. FOLIC ACID. [Concomitant]
     Active Substance: FOLIC ACID
  41. SUMATRIPTAN SUCC [Concomitant]
     Active Substance: SUMATRIPTAN SUCCINATE
  42. CYANOCOBALAMIN. [Concomitant]
     Active Substance: CYANOCOBALAMIN
  43. NEXIUM [Suspect]
     Active Substance: ESOMEPRAZOLE MAGNESIUM
     Indication: GASTROOESOPHAGEAL REFLUX DISEASE
     Route: 048
     Dates: start: 2009, end: 2017
  44. CIPROFLOXACIN. [Concomitant]
     Active Substance: CIPROFLOXACIN
     Indication: ANTIBIOTIC THERAPY
     Route: 065
     Dates: start: 2009, end: 2016
  45. AMBIEN [Concomitant]
     Active Substance: ZOLPIDEM TARTRATE
  46. KLOR-CON [Concomitant]
     Active Substance: POTASSIUM CHLORIDE
  47. LAMICTAL [Concomitant]
     Active Substance: LAMOTRIGINE
  48. PROPOXYPHEN-APAP [Concomitant]
  49. VITAMIN D3 [Concomitant]
     Active Substance: CHOLECALCIFEROL
  50. NEXIUM [Suspect]
     Active Substance: ESOMEPRAZOLE MAGNESIUM
     Indication: GASTROOESOPHAGEAL REFLUX DISEASE
     Route: 048
     Dates: start: 20090105
  51. NEXIUM [Suspect]
     Active Substance: ESOMEPRAZOLE MAGNESIUM
     Indication: GASTROOESOPHAGEAL REFLUX DISEASE
     Dosage: GENERIC ESOMEPRAZOLE MAGNESIUM40.0MG UNKNOWN
     Route: 048
     Dates: start: 20161121
  52. PRILOSEC [Suspect]
     Active Substance: OMEPRAZOLE MAGNESIUM
     Indication: GASTROOESOPHAGEAL REFLUX DISEASE
     Dosage: GENERIC OMEPRAZOLE40.0MG UNKNOWN
     Route: 065
     Dates: start: 20170412
  53. FLUCONAZOLE. [Concomitant]
     Active Substance: FLUCONAZOLE
  54. MIRTAZAPINE. [Concomitant]
     Active Substance: MIRTAZAPINE
  55. CLONAZEPAM. [Concomitant]
     Active Substance: CLONAZEPAM
  56. TRAMADOL. [Concomitant]
     Active Substance: TRAMADOL
     Indication: PAIN
     Dates: start: 2009, end: 2011
  57. AZITHROMYCIN ANHYDROUS. [Concomitant]
     Active Substance: AZITHROMYCIN ANHYDROUS
     Indication: ANTIBIOTIC THERAPY
     Route: 065
     Dates: start: 2009, end: 2015
  58. ALKA-SELTZER [Concomitant]
     Active Substance: ANHYDROUS CITRIC ACID\ASPIRIN\SODIUM BICARBONATE
     Dates: start: 1980
  59. STROMECTOL [Concomitant]
     Active Substance: IVERMECTIN
  60. PROMETHAZINE [Concomitant]
     Active Substance: PROMETHAZINE HYDROCHLORIDE
  61. CYCLOBENZAPRINE. [Concomitant]
     Active Substance: CYCLOBENZAPRINE
  62. OXYBUTYNIN. [Concomitant]
     Active Substance: OXYBUTYNIN CHLORIDE
  63. PROCTOSOL [Concomitant]
  64. NEXIUM 24HR [Suspect]
     Active Substance: ESOMEPRAZOLE MAGNESIUM
     Indication: GASTROOESOPHAGEAL REFLUX DISEASE
     Route: 048
     Dates: start: 2016
  65. PREVACID [Suspect]
     Active Substance: LANSOPRAZOLE
     Indication: GASTROOESOPHAGEAL REFLUX DISEASE
     Route: 065
  66. ZEGERID [Suspect]
     Active Substance: OMEPRAZOLE\SODIUM BICARBONATE
     Indication: GASTROOESOPHAGEAL REFLUX DISEASE
     Dosage: 40-1100 MG UNKNOWN
     Route: 048
     Dates: start: 20110713
  67. ALPRAZOLAM. [Concomitant]
     Active Substance: ALPRAZOLAM
  68. MELOXICAM. [Concomitant]
     Active Substance: MELOXICAM
     Indication: ANALGESIC INTERVENTION SUPPORTIVE THERAPY
     Dates: start: 2016, end: 2017
  69. PEPCID [Concomitant]
     Active Substance: FAMOTIDINE
     Dosage: PEPCID COMPLETE (OTC)
     Dates: start: 2017
  70. ZANTAC [Concomitant]
     Active Substance: RANITIDINE HYDROCHLORIDE
     Dosage: ZANTAC 150 PRESCRIPTION
  71. TUMS [Concomitant]
     Active Substance: CALCIUM CARBONATE
     Dosage: STARTED DURING 1980S
  72. HYDROCODON-ACETAMINOPH [Concomitant]
  73. BYSTOLIC [Concomitant]
     Active Substance: NEBIVOLOL HYDROCHLORIDE

REACTIONS (4)
  - Chronic kidney disease [Not Recovered/Not Resolved]
  - Rebound acid hypersecretion [Unknown]
  - Renal failure [Unknown]
  - Hyperparathyroidism secondary [Unknown]

NARRATIVE: CASE EVENT DATE: 20110713
